FAERS Safety Report 11457008 (Version 2)
Quarter: 2015Q3

REPORT INFORMATION
  Report Type: Spontaneous
  Country: US (occurrence: US)
  Receive Date: 20150904
  Receipt Date: 20150909
  Transmission Date: 20151125
  Serious: No
  Sender: FDA-Public Use
  Company Number: US-BRISTOL-MYERS SQUIBB COMPANY-BMS-2015-058624

PATIENT
  Sex: Female

DRUGS (9)
  1. ABILIFY [Suspect]
     Active Substance: ARIPIPRAZOLE
     Indication: DEPRESSION
  2. LEXAPRO [Suspect]
     Active Substance: ESCITALOPRAM OXALATE
     Indication: NERVOUSNESS
     Dosage: UNK
     Route: 065
     Dates: start: 201308
  3. ABILIFY [Suspect]
     Active Substance: ARIPIPRAZOLE
     Indication: ANXIETY
     Dosage: 0.5 DF, QD
     Route: 065
     Dates: start: 201507
  4. LEXAPRO [Suspect]
     Active Substance: ESCITALOPRAM OXALATE
     Indication: DEPRESSION
  5. ATIVAN [Suspect]
     Active Substance: LORAZEPAM
     Indication: DEPRESSION
  6. ABILIFY [Suspect]
     Active Substance: ARIPIPRAZOLE
     Indication: NERVOUSNESS
     Dosage: 2 MG, UNK
     Route: 065
     Dates: start: 201308
  7. LEXAPRO [Suspect]
     Active Substance: ESCITALOPRAM OXALATE
     Indication: ANXIETY
  8. ATIVAN [Suspect]
     Active Substance: LORAZEPAM
     Indication: NERVOUSNESS
     Dosage: UNK
     Route: 065
     Dates: start: 201308
  9. ATIVAN [Suspect]
     Active Substance: LORAZEPAM
     Indication: ANXIETY

REACTIONS (5)
  - Wrong technique in product usage process [Unknown]
  - Myalgia [Not Recovered/Not Resolved]
  - Pain in extremity [Not Recovered/Not Resolved]
  - Weight increased [Unknown]
  - Blood cholesterol increased [Unknown]
